FAERS Safety Report 19952521 (Version 2)
Quarter: 2021Q4

REPORT INFORMATION
  Report Type: Spontaneous
  Country: BR (occurrence: None)
  Receive Date: 20211013
  Receipt Date: 20211105
  Transmission Date: 20220303
  Serious: Yes (Hospitalization)
  Sender: FDA-Public Use
  Company Number: 2021A766685

PATIENT
  Age: 75 Year
  Sex: Male

DRUGS (6)
  1. TAGRISSO [Suspect]
     Active Substance: OSIMERTINIB
     Indication: Lung cancer metastatic
     Dosage: AT BED TIME
     Route: 048
     Dates: start: 20210704, end: 20210823
  2. TAGRISSO [Suspect]
     Active Substance: OSIMERTINIB
     Indication: Lung cancer metastatic
     Dosage: AT BED TIME
     Route: 048
     Dates: start: 20210913
  3. DUTASTERIDE\TAMSULOSIN [Concomitant]
     Active Substance: DUTASTERIDE\TAMSULOSIN
     Dosage: A TABLET
     Route: 065
  4. HOLMES [Concomitant]
     Route: 065
  5. OLMESARTAN [Concomitant]
     Active Substance: OLMESARTAN
     Dosage: A TABLET
     Route: 065
  6. VENLAFAXINE [Concomitant]
     Active Substance: VENLAFAXINE HYDROCHLORIDE
     Dosage: A TABLET
     Route: 065

REACTIONS (7)
  - Pyrexia [Recovered/Resolved]
  - Drug-induced liver injury [Recovered/Resolved]
  - Dengue fever [Recovered/Resolved]
  - Jaundice [Recovered/Resolved]
  - Fatigue [Recovered/Resolved]
  - Asthenia [Recovered/Resolved]
  - Ill-defined disorder [Recovered/Resolved]

NARRATIVE: CASE EVENT DATE: 20210803
